FAERS Safety Report 4377491-8 (Version None)
Quarter: 2004Q2

REPORT INFORMATION
  Report Type: 
  Country: None (occurrence: None)
  Receive Date: 20040602
  Receipt Date: 20031001
  Transmission Date: 20050107
  Serious: Yes (Hospitalization)
  Sender: FDA-Public Use
  Company Number: NSADSS2001034150

PATIENT
  Age: 66 Year
  Sex: Female
  Weight: 84.369 kg

DRUGS (2)
  1. PROPULSID [Suspect]
     Indication: GASTROOESOPHAGEAL REFLUX DISEASE
     Dosage: 10 MG, 1 IN 1 DAY, ORAL
     Route: 048
     Dates: start: 19970520, end: 19980421
  2. OMEPRAZOLE [Concomitant]

REACTIONS (7)
  - ABDOMINAL PAIN UPPER [None]
  - ARRHYTHMIA [None]
  - CHEST PAIN [None]
  - PAIN [None]
  - PALPITATIONS [None]
  - RECTAL HAEMORRHAGE [None]
  - TRANSIENT ISCHAEMIC ATTACK [None]
